FAERS Safety Report 7813278-9 (Version None)
Quarter: 2011Q4

REPORT INFORMATION
  Report Type: 
  Country: None (occurrence: None)
  Receive Date: 20111013
  Receipt Date: 20110929
  Transmission Date: 20120403
  Serious: Yes (Death, Hospitalization)
  Sender: FDA-Public Use
  Company Number: GR-ROCHE-794616

PATIENT
  Age: 62 Year
  Sex: Male
  Weight: 90 kg

DRUGS (3)
  1. CIPROFLOXACIN [Concomitant]
     Dates: start: 20110729, end: 20110801
  2. METHYLPREDNISOLONE [Concomitant]
     Dates: start: 20110601, end: 20110805
  3. VEMURAFENIB [Suspect]
     Indication: MALIGNANT MELANOMA
     Dosage: LAST DOSE PRIOR TO SAE: 31 JULY 2011,PERMANENTLY DISCONTINUED
     Route: 048
     Dates: start: 20110530, end: 20110801

REACTIONS (13)
  - TACHYCARDIA [None]
  - RESPIRATORY FATIGUE [None]
  - TUMOUR LYSIS SYNDROME [None]
  - METABOLIC ACIDOSIS [None]
  - MULTI-ORGAN FAILURE [None]
  - STUPOR [None]
  - INFECTION [None]
  - RENAL FAILURE ACUTE [None]
  - ISCHAEMIA [None]
  - SEPSIS [None]
  - DYSPNOEA EXERTIONAL [None]
  - HYPERHIDROSIS [None]
  - SOMNOLENCE [None]
